FAERS Safety Report 10261285 (Version 1)
Quarter: 2014Q2

REPORT INFORMATION
  Report Type: Spontaneous
  Country: US (occurrence: US)
  Receive Date: 20140626
  Receipt Date: 20140626
  Transmission Date: 20141212
  Serious: Yes (Hospitalization)
  Sender: FDA-Public Use
  Company Number: US-JNJFOC-20140612696

PATIENT
  Sex: Female

DRUGS (4)
  1. XARELTO [Suspect]
     Indication: PRODUCT USED FOR UNKNOWN INDICATION
     Route: 048
  2. LETAIRIS [Suspect]
     Indication: PULMONARY HYPERTENSION
     Route: 048
     Dates: start: 20120501
  3. HEPARIN [Concomitant]
     Route: 065
  4. VELETRI [Concomitant]
     Route: 065

REACTIONS (6)
  - Medical device complication [Unknown]
  - Sepsis [Unknown]
  - Staphylococcal infection [Unknown]
  - Escherichia infection [Unknown]
  - Venous thrombosis [Unknown]
  - Neck pain [Unknown]
